FAERS Safety Report 22244211 (Version 1)
Quarter: 2023Q2

REPORT INFORMATION
  Report Type: Spontaneous
  Country: US (occurrence: US)
  Receive Date: 20230424
  Receipt Date: 20230424
  Transmission Date: 20230721
  Serious: Yes (Other)
  Sender: FDA-Public Use
  Company Number: US-AMGEN-USASP2023069122

PATIENT
  Age: 20 Year
  Sex: Female

DRUGS (4)
  1. CARFILZOMIB [Suspect]
     Active Substance: CARFILZOMIB
     Indication: Immune tolerance induction
     Dosage: UNK
     Route: 065
  2. CARFILZOMIB [Suspect]
     Active Substance: CARFILZOMIB
     Indication: Off label use
  3. BELATACEPT [Suspect]
     Active Substance: BELATACEPT
     Indication: Product used for unknown indication
     Dosage: 10 MILLIGRAM/KILOGRAM DAYS 1,5, 9, 15, AND 29
     Route: 065
  4. BELATACEPT [Suspect]
     Active Substance: BELATACEPT
     Dosage: 5 MILLIGRAM/KILOGRAM EVERY 28 DAYS
     Route: 065

REACTIONS (3)
  - Heart transplant rejection [Unknown]
  - Neuropathy peripheral [Unknown]
  - Off label use [Unknown]
